FAERS Safety Report 25143778 (Version 1)
Quarter: 2025Q2

REPORT INFORMATION
  Report Type: Spontaneous
  Country: AE (occurrence: AE)
  Receive Date: 20250401
  Receipt Date: 20250401
  Transmission Date: 20250716
  Serious: Yes (Hospitalization, Other)
  Sender: ROCHE
  Company Number: AE-ROCHE-10000237661

PATIENT
  Age: 44 Year
  Sex: Female

DRUGS (1)
  1. AVASTIN [Suspect]
     Active Substance: BEVACIZUMAB
     Indication: Product used for unknown indication
     Route: 065
     Dates: start: 20201031

REACTIONS (4)
  - Lymphadenopathy [Unknown]
  - Colectomy [Unknown]
  - Metastases to liver [Unknown]
  - Back pain [Unknown]

NARRATIVE: CASE EVENT DATE: 20230913
